FAERS Safety Report 10943867 (Version 1)
Quarter: 2015Q1

REPORT INFORMATION
  Report Type: Spontaneous
  Country: US (occurrence: None)
  Receive Date: 20150212
  Receipt Date: 20150212
  Transmission Date: 20150721
  Serious: No
  Sender: FDA-Public Use
  Company Number: TPA2011A02559

PATIENT
  Age: 72 Year
  Sex: Male
  Weight: 95.26 kg

DRUGS (3)
  1. ULORIC [Suspect]
     Active Substance: FEBUXOSTAT
     Indication: GOUT
     Route: 048
     Dates: start: 201010, end: 201010
  2. ATENOLOL (ATENOLOL) [Concomitant]
     Active Substance: ATENOLOL
  3. BENICAR [Concomitant]
     Active Substance: OLMESARTAN MEDOXOMIL

REACTIONS (1)
  - Gout [None]

NARRATIVE: CASE EVENT DATE: 201010
